FAERS Safety Report 12176603 (Version 4)
Quarter: 2016Q1

REPORT INFORMATION
  Report Type: Report from Study
  Country: US (occurrence: US)
  Receive Date: 20160315
  Receipt Date: 20160322
  Transmission Date: 20160526
  Serious: No
  Sender: FDA-Public Use
  Company Number: PHEH2016US005504

PATIENT
  Sex: Male

DRUGS (2)
  1. ENTRESTO [Suspect]
     Active Substance: SACUBITRIL\VALSARTAN
     Indication: PRODUCT USED FOR UNKNOWN INDICATION
     Route: 065
  2. SOTALOL. [Interacting]
     Active Substance: SOTALOL
     Indication: DEVICE FAILURE
     Dosage: UNK
     Route: 065

REACTIONS (12)
  - Heart rate increased [Unknown]
  - Blood sodium decreased [Recovering/Resolving]
  - Blood calcium decreased [Recovering/Resolving]
  - Diarrhoea [Recovering/Resolving]
  - Dehydration [Recovering/Resolving]
  - Blood potassium decreased [Recovering/Resolving]
  - Blood magnesium decreased [Recovering/Resolving]
  - Device malfunction [Unknown]
  - Drug interaction [Unknown]
  - Syncope [Unknown]
  - Abdominal discomfort [Unknown]
  - Blood electrolytes decreased [Recovering/Resolving]
